FAERS Safety Report 16124388 (Version 1)
Quarter: 2019Q1

REPORT INFORMATION
  Report Type: Spontaneous
  Country: US (occurrence: US)
  Receive Date: 20190327
  Receipt Date: 20190327
  Transmission Date: 20190418
  Serious: No
  Sender: FDA-Public Use
  Company Number: US-SA-2019SA080935

PATIENT
  Sex: Male

DRUGS (1)
  1. DUPIXENT [Suspect]
     Active Substance: DUPILUMAB
     Indication: DERMATITIS
     Dosage: 300 MG, QOW
     Route: 058

REACTIONS (6)
  - Skin burning sensation [Unknown]
  - Dermatitis [Unknown]
  - Polyp [Unknown]
  - Eye pruritus [Unknown]
  - Dry mouth [Unknown]
  - Pyrexia [Unknown]
